FAERS Safety Report 9129581 (Version 1)
Quarter: 2013Q1

REPORT INFORMATION
  Report Type: Spontaneous
  Country: US (occurrence: US)
  Receive Date: 20130125
  Receipt Date: 20130125
  Transmission Date: 20140127
  Serious: No
  Sender: FDA-Public Use
  Company Number: US-PFIZER INC-2013027034

PATIENT
  Age: 58 Year
  Sex: Male
  Weight: 90.7 kg

DRUGS (6)
  1. GLUCOTROL [Suspect]
     Indication: GLUCOSE TOLERANCE IMPAIRED
     Dosage: 10 MG, 2X/DAY
     Route: 048
  2. NEURONTIN [Suspect]
     Indication: BURNING SENSATION
     Dosage: 300 MG, 3X/DAY
     Route: 048
  3. PROCARDIA XL [Suspect]
     Indication: CARDIAC DISORDER
     Dosage: 30 MG, 1X/DAY
     Route: 048
  4. LIPITOR [Suspect]
     Indication: BLOOD CHOLESTEROL INCREASED
     Dosage: 20 MG, 1X/DAY
     Route: 048
  5. NITRO-DUR [Concomitant]
     Indication: CARDIAC DISORDER
     Dosage: UNK
  6. TOPROL [Concomitant]
     Indication: CARDIAC DISORDER
     Dosage: UNK

REACTIONS (2)
  - Localised infection [Not Recovered/Not Resolved]
  - Limb injury [Unknown]
